FAERS Safety Report 13830575 (Version 1)
Quarter: 2017Q3

REPORT INFORMATION
  Report Type: Spontaneous
  Country: US (occurrence: US)
  Receive Date: 20170803
  Receipt Date: 20170803
  Transmission Date: 20171127
  Serious: No
  Sender: FDA-Public Use
  Company Number: US-SA-2017SA090751

PATIENT
  Age: 58 Year
  Sex: Male

DRUGS (13)
  1. ALIROCUMAB PREFILLED PEN [Concomitant]
     Active Substance: ALIROCUMAB
     Dates: start: 201702
  2. ATORVASTATIN [Concomitant]
     Active Substance: ATORVASTATIN
  3. ASA [Concomitant]
     Active Substance: ASPIRIN
  4. ZETIA [Concomitant]
     Active Substance: EZETIMIBE
  5. WARFARIN [Concomitant]
     Active Substance: WARFARIN
  6. VITAMIN D3 [Concomitant]
     Active Substance: CHOLECALCIFEROL
  7. SPIRONOLACTONE. [Concomitant]
     Active Substance: SPIRONOLACTONE
  8. CIALIS [Concomitant]
     Active Substance: TADALAFIL
  9. COENZYME Q10 [Concomitant]
     Active Substance: UBIDECARENONE
  10. LOSARTAN. [Concomitant]
     Active Substance: LOSARTAN
  11. PRALUENT [Suspect]
     Active Substance: ALIROCUMAB
     Route: 058
     Dates: start: 201702
  12. CARVEDILOL. [Concomitant]
     Active Substance: CARVEDILOL
  13. FISH OIL [Concomitant]
     Active Substance: FISH OIL

REACTIONS (2)
  - Nipple pain [Unknown]
  - Acne [Unknown]

NARRATIVE: CASE EVENT DATE: 201702
